FAERS Safety Report 21613778 (Version 1)
Quarter: 2022Q4

REPORT INFORMATION
  Report Type: Spontaneous
  Country: CA (occurrence: CA)
  Receive Date: 20221118
  Receipt Date: 20221118
  Transmission Date: 20230113
  Serious: Yes (Other)
  Sender: FDA-Public Use
  Company Number: None

PATIENT
  Age: 55 Year
  Sex: Female

DRUGS (2)
  1. OXALIPLATIN [Suspect]
     Active Substance: OXALIPLATIN
     Indication: Colorectal cancer metastatic
     Route: 065
  2. CETUXIMAB [Concomitant]
     Active Substance: CETUXIMAB

REACTIONS (6)
  - Disease progression [Unknown]
  - Illness [Unknown]
  - Intestinal mass [Unknown]
  - Neuropathy peripheral [Unknown]
  - Pulmonary mass [Unknown]
  - Seroma [Unknown]
